FAERS Safety Report 9316171 (Version 3)
Quarter: 2013Q2

REPORT INFORMATION
  Report Type: Spontaneous
  Country: US (occurrence: US)
  Receive Date: 20130530
  Receipt Date: 20130621
  Transmission Date: 20140414
  Serious: Yes (Other)
  Sender: FDA-Public Use
  Company Number: US-PFIZER INC-2013164619

PATIENT
  Age: 52 Year
  Sex: Male
  Weight: 76.6 kg

DRUGS (10)
  1. CHANTIX [Suspect]
     Indication: SMOKING CESSATION THERAPY
     Dosage: 1 MG, 2X/DAY
     Route: 048
     Dates: start: 20080717, end: 200810
  2. CHANTIX [Suspect]
     Dosage: UNK, 2X/DAY
     Route: 048
     Dates: start: 2009
  3. CHANTIX [Suspect]
     Dosage: 0.5 MG, 1X/DAY (DAYS 1-3)
     Route: 048
     Dates: start: 20120419, end: 20120421
  4. CHANTIX [Suspect]
     Dosage: 0.5 MG, 2X/DAY (DAYS 4-7))
     Route: 048
     Dates: start: 20120422, end: 20120425
  5. CHANTIX [Suspect]
     Dosage: 1 MG, 2X/DAY
     Route: 048
     Dates: start: 20120426
  6. WARFARIN [Concomitant]
     Indication: ANTICOAGULANT THERAPY
     Dosage: 10 MG, 3X/WEEK (MONDAY, WEDNESDAY AND FRIDAY)
  7. DIGOXIN [Concomitant]
     Indication: ANTICOAGULANT THERAPY
     Dosage: 0.125 MG 2 TABLETS ON MONDAY WEDNESDAY FRIDAY AND 1 TABLET ALL OTHER DAYS
     Route: 048
     Dates: start: 20080710, end: 200810
  8. DIGOXIN [Concomitant]
     Dosage: 0.25 MG, 3X/WEEK (MONDAY, WEDNESDAY AND FRIDAY)
     Route: 048
  9. COUMADIN [Concomitant]
     Dosage: 10MG ON TUESDAY, THURSDAY, SATURDAY, SUNDAY AND 7.5 MG ALL OTHER DAYS
     Route: 048
     Dates: start: 20040102, end: 200404
  10. TETANUS VACCINE [Concomitant]
     Indication: IMMUNISATION
     Dosage: UNK
     Dates: start: 20040101

REACTIONS (2)
  - Pharyngeal disorder [Unknown]
  - Depression [Unknown]
